FAERS Safety Report 9934846 (Version 1)
Quarter: 2014Q1

REPORT INFORMATION
  Report Type: Spontaneous
  Country: MX (occurrence: MX)
  Receive Date: 20140228
  Receipt Date: 20140228
  Transmission Date: 20141002
  Serious: Yes (Hospitalization, Disabling, Other)
  Sender: FDA-Public Use
  Company Number: PHHY2014MX024927

PATIENT
  Age: 50 Year
  Sex: Female

DRUGS (1)
  1. EXFORGE HCT [Suspect]
     Indication: HYPERTENSION
     Dosage: 1 DF (160/5/12.5 MG), DAILY
     Route: 048

REACTIONS (7)
  - Spinal cord paralysis [Not Recovered/Not Resolved]
  - Fall [Not Recovered/Not Resolved]
  - Movement disorder [Not Recovered/Not Resolved]
  - Pulmonary infarction [Not Recovered/Not Resolved]
  - Pallor [Not Recovered/Not Resolved]
  - Aggression [Not Recovered/Not Resolved]
  - Overweight [Not Recovered/Not Resolved]
